FAERS Safety Report 11090517 (Version 1)
Quarter: 2015Q2

REPORT INFORMATION
  Report Type: Report from Study
  Country: DE (occurrence: DE)
  Receive Date: 20150505
  Receipt Date: 20150505
  Transmission Date: 20150821
  Serious: No
  Sender: FDA-Public Use
  Company Number: PHHY2013DE098094

PATIENT
  Sex: Female

DRUGS (11)
  1. ONDANSETRON [Concomitant]
     Active Substance: ONDANSETRON
     Indication: PRODUCT USED FOR UNKNOWN INDICATION
     Dosage: 4 MG, UNK
     Route: 065
     Dates: start: 20130228, end: 20130324
  2. PREDNI-H [Concomitant]
     Dosage: 5 MG, UNK
     Route: 065
     Dates: start: 20130325, end: 20130407
  3. AMN107 [Suspect]
     Active Substance: NILOTINIB
     Indication: CHRONIC MYELOID LEUKAEMIA
     Dosage: 800 MG, PER DAY
     Route: 048
     Dates: start: 20130222, end: 20130228
  4. AMN107 [Suspect]
     Active Substance: NILOTINIB
     Dosage: 400 MG, PER DAY
     Route: 048
     Dates: start: 20130228, end: 20130419
  5. AMN107 [Suspect]
     Active Substance: NILOTINIB
     Dosage: 600 MG, PER DAY
     Route: 048
     Dates: start: 20130420, end: 20150120
  6. PREDNI-H [Concomitant]
     Indication: PRODUCT USED FOR UNKNOWN INDICATION
     Dosage: 20 MG, UNK
     Route: 065
     Dates: start: 20130228, end: 20130310
  7. TRAMABETA [Concomitant]
     Indication: PRODUCT USED FOR UNKNOWN INDICATION
     Dosage: 150 MG, UNK
     Route: 065
     Dates: start: 20140326, end: 20140415
  8. AMN107 [Suspect]
     Active Substance: NILOTINIB
     Dosage: 300 MG, UNK
     Route: 048
     Dates: start: 20150121
  9. OMEPRAZOLE. [Concomitant]
     Active Substance: OMEPRAZOLE
     Indication: PRODUCT USED FOR UNKNOWN INDICATION
     Dosage: 20 MG, UNK
     Route: 065
     Dates: start: 20131007
  10. PREDNI-H [Concomitant]
     Dosage: 10 MG, UNK
     Route: 065
     Dates: start: 20130311, end: 20130324
  11. IBUPROFEN. [Concomitant]
     Active Substance: IBUPROFEN
     Indication: PRODUCT USED FOR UNKNOWN INDICATION
     Dosage: 180 MG, UNK
     Route: 065
     Dates: start: 20130325, end: 20140415

REACTIONS (2)
  - Arthralgia [Recovering/Resolving]
  - Peripheral swelling [Recovered/Resolved]

NARRATIVE: CASE EVENT DATE: 20130228
